FAERS Safety Report 4532672-5 (Version None)
Quarter: 2004Q4

REPORT INFORMATION
  Report Type: 
  Country: None (occurrence: None)
  Receive Date: 20041220
  Receipt Date: 20041220
  Transmission Date: 20050328
  Serious: No
  Sender: FDA-Public Use
  Company Number: None

PATIENT
  Age: 56 Year
  Sex: Female
  Weight: 71.6 kg

DRUGS (1)
  1. ELOXATIN [Suspect]
     Dosage: 150MG IN 310ML DSW
     Dates: start: 20031016

REACTIONS (6)
  - DIZZINESS [None]
  - FEELING COLD [None]
  - LACRIMATION INCREASED [None]
  - PARAESTHESIA [None]
  - PARAESTHESIA ORAL [None]
  - PERIPHERAL COLDNESS [None]
